FAERS Safety Report 12269334 (Version 1)
Quarter: 2016Q2

REPORT INFORMATION
  Report Type: Spontaneous
  Country: SE (occurrence: SE)
  Receive Date: 20160414
  Receipt Date: 20160414
  Transmission Date: 20160815
  Serious: Yes (Other)
  Sender: FDA-Public Use
  Company Number: SE-TEVA-649972ISR

PATIENT
  Age: 57 Year
  Sex: Male

DRUGS (1)
  1. ATORVASTATIN [Suspect]
     Active Substance: ATORVASTATIN
     Route: 048

REACTIONS (2)
  - Rectal haemorrhage [Recovered/Resolved with Sequelae]
  - Haematuria [Recovered/Resolved with Sequelae]
